FAERS Safety Report 7714653-3 (Version None)
Quarter: 2011Q3

REPORT INFORMATION
  Report Type: 
  Country: None (occurrence: None)
  Receive Date: 20110829
  Receipt Date: 20110818
  Transmission Date: 20111222
  Serious: Yes (Other)
  Sender: FDA-Public Use
  Company Number: CH-JNJFOC-20110807767

PATIENT
  Age: 82 Year
  Sex: Male

DRUGS (8)
  1. VITAMIN D3 STREULI [Concomitant]
     Dosage: 4 DROPS PER DAY
     Route: 065
  2. SPIRIVA [Concomitant]
     Route: 065
  3. REPAGLINIDE [Concomitant]
     Route: 065
  4. SPORANOX [Suspect]
     Route: 065
     Dates: start: 20110616, end: 20110703
  5. HYDROCORTISONE [Suspect]
     Indication: ADRENALECTOMY
     Route: 065
  6. HYDROCORTISONE [Suspect]
     Route: 065
     Dates: start: 19960101
  7. TORSEMIDE [Concomitant]
     Route: 065
  8. SPORANOX [Suspect]
     Indication: HISTOPLASMOSIS
     Route: 065
     Dates: start: 20110522, end: 20110527

REACTIONS (2)
  - CUSHINGOID [None]
  - HYPOKALAEMIA [None]
